FAERS Safety Report 4952194-7 (Version None)
Quarter: 2006Q1

REPORT INFORMATION
  Report Type: 
  Country: None (occurrence: None)
  Receive Date: 20060320
  Receipt Date: 20060310
  Transmission Date: 20060701
  Serious: Yes (Death)
  Sender: FDA-Public Use
  Company Number: 06H-066-0306246-00

PATIENT

DRUGS (3)
  1. ETOPOSIDE                          (ETOPOSIDE) (ETOPOSIDE) [Suspect]
     Indication: SMALL CELL LUNG CANCER EXTENSIVE STAGE
     Dosage: 100 MG/M2
  2. CISPLATIN [Suspect]
     Indication: SMALL CELL LUNG CANCER EXTENSIVE STAGE
     Dosage: 75 MG/M2
  3. SODIUM CHLORIDE [Concomitant]

REACTIONS (2)
  - DRUG TOXICITY [None]
  - LUNG INFECTION [None]
